FAERS Safety Report 6144661-8 (Version None)
Quarter: 2009Q2

REPORT INFORMATION
  Report Type: 
  Country: None (occurrence: None)
  Receive Date: 20090406
  Receipt Date: 20090330
  Transmission Date: 20091009
  Serious: Yes (Hospitalization)
  Sender: FDA-Public Use
  Company Number: A0776994A

PATIENT
  Sex: Male
  Weight: 50 kg

DRUGS (1)
  1. SERETIDE [Suspect]
     Dosage: 1PUFF TWICE PER DAY
     Dates: start: 20090227, end: 20090317

REACTIONS (2)
  - DYSPNOEA [None]
  - FATIGUE [None]
